FAERS Safety Report 4993051-X (Version None)
Quarter: 2006Q1

REPORT INFORMATION
  Report Type: 
  Country: None (occurrence: None)
  Receive Date: 20060313
  Receipt Date: 20051111
  Transmission Date: 20060701
  Serious: No
  Sender: FDA-Public Use
  Company Number: 2005-BP-16543BP

PATIENT
  Sex: Female

DRUGS (6)
  1. SPIRIVA [Suspect]
     Indication: CHRONIC OBSTRUCTIVE PULMONARY DISEASE
     Dosage: 18 MCG (18 MCG,1 IN 1 D),IH
     Dates: start: 20050719
  2. SPIRIVA [Suspect]
     Indication: LUNG DISORDER
     Dosage: 18 MCG (18 MCG,1 IN 1 D),IH
     Dates: start: 20050719
  3. THYROID MEDICINE [Concomitant]
  4. PRILOSEC [Concomitant]
  5. LIPITOR [Concomitant]
  6. AVALIDE (KARVEA HCT) [Concomitant]

REACTIONS (3)
  - DRUG INEFFECTIVE [None]
  - DYSPNOEA [None]
  - SOMNOLENCE [None]
